FAERS Safety Report 4767214-2 (Version None)
Quarter: 2005Q3

REPORT INFORMATION
  Report Type: 
  Country: None (occurrence: None)
  Receive Date: 20050912
  Receipt Date: 20050912
  Transmission Date: 20060218
  Serious: Yes (Death, Other)
  Sender: FDA-Public Use
  Company Number: None

PATIENT
  Sex: Female

DRUGS (4)
  1. NIFEDIPINE [Suspect]
     Indication: TOCOLYSIS
     Dosage: 10MGOTH / 20MGQ3HR
  2. ATOSIBAN [Concomitant]
  3. CORTICOSTEROIDS FOR SYSTEMIC USE [Concomitant]
  4. INDOMETHACIN [Concomitant]

REACTIONS (3)
  - BRADYCARDIA FOETAL [None]
  - DRUG EXPOSURE DURING PREGNANCY [None]
  - INTRA-UTERINE DEATH [None]
